FAERS Safety Report 5914290-7 (Version None)
Quarter: 2008Q4

REPORT INFORMATION
  Report Type: 
  Country: None (occurrence: None)
  Receive Date: 20081009
  Receipt Date: 20081006
  Transmission Date: 20090506
  Serious: Yes (Hospitalization)
  Sender: FDA-Public Use
  Company Number: JP-B.I. PHARMACEUTICALS,INC./RIDGEFIELD-2008-BP-14775NB

PATIENT
  Sex: Male
  Weight: 39 kg

DRUGS (2)
  1. SPIRIVA [Suspect]
     Indication: EMPHYSEMA
     Dosage: 18MCG
     Route: 055
     Dates: start: 20080401
  2. BLOPRESS [Concomitant]
     Dosage: .5ANZ
     Route: 048
     Dates: end: 20080913

REACTIONS (3)
  - PYREXIA [None]
  - RIGHT VENTRICULAR FAILURE [None]
  - URINARY TRACT INFECTION [None]
